FAERS Safety Report 15918088 (Version 5)
Quarter: 2019Q2

REPORT INFORMATION
  Report Type: Spontaneous
  Country: US (occurrence: US)
  Receive Date: 20190205
  Receipt Date: 20190627
  Transmission Date: 20190711
  Serious: No
  Sender: FDA-Public Use
  Company Number: US-PFIZER INC-2019052327

PATIENT
  Age: 76 Year
  Sex: Female
  Weight: 68.27 kg

DRUGS (1)
  1. XALKORI [Suspect]
     Active Substance: CRIZOTINIB
     Indication: LUNG CANCER METASTATIC
     Dosage: 250 MG, 2X/DAY
     Route: 048
     Dates: start: 20190117

REACTIONS (12)
  - Neoplasm progression [Unknown]
  - Dysphonia [Unknown]
  - Diarrhoea [Unknown]
  - Visual impairment [Unknown]
  - Vomiting [Unknown]
  - Nausea [Unknown]
  - Joint swelling [Unknown]
  - Wheezing [Unknown]
  - Dyspnoea [Unknown]
  - Fluid retention [Unknown]
  - Skin lesion [Unknown]
  - Peripheral swelling [Unknown]
